FAERS Safety Report 10083927 (Version 2)
Quarter: 2014Q2

REPORT INFORMATION
  Report Type: Spontaneous
  Country: US (occurrence: US)
  Receive Date: 20140417
  Receipt Date: 20140509
  Transmission Date: 20141212
  Serious: No
  Sender: FDA-Public Use
  Company Number: US-PFIZER INC-2014102561

PATIENT
  Age: 37 Year
  Sex: Male
  Weight: 76.2 kg

DRUGS (6)
  1. CAVERJECT [Suspect]
     Indication: ERECTILE DYSFUNCTION
     Dosage: 20 UG, UNK
  2. CAVERJECT [Suspect]
     Dosage: 40 UG, UNK
  3. FLEXERIL [Concomitant]
     Indication: MYALGIA
     Dosage: 10 MG, 1/2 TO ONE TABLET THREE TIMES DAILY FOR 2 WEEKS THEN AS NEEDED
  4. FLEXERIL [Concomitant]
     Indication: MUSCLE SPASMS
  5. NORCO [Concomitant]
     Indication: PAIN
     Dosage: HYDROCODONE 5MG /ACETAMINOPHEN 325MG EVERY 6 HOURS AS NEEDED
  6. ZANAFLEX [Concomitant]
     Dosage: 2 MG, 1X/DAY (EVERY HS), INCREASE EVERY 3 NIGHTS UPTO 3 EVERY HS
     Route: 048

REACTIONS (3)
  - Drug ineffective [Unknown]
  - Drug effect delayed [Unknown]
  - Drug effect decreased [Unknown]
